FAERS Safety Report 5006573-2 (Version None)
Quarter: 2006Q2

REPORT INFORMATION
  Report Type: 
  Country: None (occurrence: None)
  Receive Date: 20060519
  Receipt Date: 20060511
  Transmission Date: 20061013
  Serious: Yes (Hospitalization)
  Sender: FDA-Public Use
  Company Number: 2006UW09364

PATIENT
  Age: 51 Year
  Sex: Male
  Weight: 90.7 kg

DRUGS (2)
  1. CRESTOR [Suspect]
     Indication: BLOOD CHOLESTEROL INCREASED
     Route: 048
     Dates: start: 20030101, end: 20050101
  2. UNSPECIFIED HEART MEDICATION [Concomitant]

REACTIONS (3)
  - DYSGEUSIA [None]
  - HEPATIC CIRRHOSIS [None]
  - PYREXIA [None]
